FAERS Safety Report 4343731-4 (Version None)
Quarter: 2004Q2

REPORT INFORMATION
  Report Type: 
  Country: None (occurrence: None)
  Receive Date: 20040422
  Receipt Date: 20040414
  Transmission Date: 20050107
  Serious: Yes (Hospitalization)
  Sender: FDA-Public Use
  Company Number: JP-BRISTOL-MYERS SQUIBB COMPANY-12564688

PATIENT
  Age: 57 Year
  Sex: Female

DRUGS (5)
  1. MEVALOTIN [Suspect]
     Indication: HYPERLIPIDAEMIA
     Route: 048
     Dates: start: 20031101, end: 20040325
  2. TSUMURA BOHUTSUSHOSAN EKISU [Suspect]
     Indication: CONSTIPATION
     Route: 048
     Dates: start: 20040301, end: 20040325
  3. DIOVAN [Concomitant]
     Indication: HYPERTENSION
     Dates: start: 20020101
  4. PL GRANULES [Concomitant]
     Indication: BRONCHITIS
     Dates: start: 20040221, end: 20040228
  5. FLOMOX [Concomitant]
     Indication: BRONCHITIS
     Dates: start: 20040221, end: 20040228

REACTIONS (11)
  - ALANINE AMINOTRANSFERASE INCREASED [None]
  - ASPARTATE AMINOTRANSFERASE INCREASED [None]
  - BLOOD ALKALINE PHOSPHATASE INCREASED [None]
  - BLOOD LACTATE DEHYDROGENASE INCREASED [None]
  - CONSTIPATION [None]
  - ERYTHEMA [None]
  - GAMMA-GLUTAMYLTRANSFERASE INCREASED [None]
  - HEPATIC FUNCTION ABNORMAL [None]
  - JAUNDICE [None]
  - MALAISE [None]
  - PRURITUS [None]
